FAERS Safety Report 21049258 (Version 2)
Quarter: 2022Q3

REPORT INFORMATION
  Report Type: Spontaneous
  Country: US (occurrence: US)
  Receive Date: 20220706
  Receipt Date: 20220707
  Transmission Date: 20221027
  Serious: No
  Sender: FDA-Public Use
  Company Number: US-PFIZER INC-202200925927

PATIENT
  Age: 41 Year
  Sex: Female
  Weight: 99.79 kg

DRUGS (3)
  1. PAXLOVID [Suspect]
     Active Substance: NIRMATRELVIR\RITONAVIR
     Indication: COVID-19 treatment
     Dosage: UNK, 2X/DAY
     Dates: start: 20220701, end: 20220702
  2. HYDROCHLOROTHIAZIDE [Concomitant]
     Active Substance: HYDROCHLOROTHIAZIDE
     Indication: Hypertension
     Dosage: 25 MG, 1X/DAY (TAKE IT 25 MG TABLET FIRST THING IN THE MORNING)
  3. LEVOTHYROXINE [Concomitant]
     Active Substance: LEVOTHYROXINE
     Indication: Thyroid disorder
     Dosage: UNK

REACTIONS (7)
  - Stomatitis [Recovering/Resolving]
  - Oral mucosal blistering [Recovering/Resolving]
  - Dysphonia [Recovering/Resolving]
  - Chemical burn [Unknown]
  - Oral pain [Unknown]
  - Hypersomnia [Recovering/Resolving]
  - Illness [Recovering/Resolving]
